FAERS Safety Report 8521790-2 (Version None)
Quarter: 2012Q3

REPORT INFORMATION
  Report Type: 
  Country: None (occurrence: None)
  Receive Date: 20120719
  Receipt Date: 20120515
  Transmission Date: 20120928
  Serious: Yes (Other)
  Sender: FDA-Public Use
  Company Number: US-BRISTOL-MYERS SQUIBB COMPANY-16398836

PATIENT
  Sex: Female

DRUGS (1)
  1. YERVOY [Suspect]
     Indication: MALIGNANT MELANOMA
     Dosage: 14DEC11, 1A71338,999 MG 9JAN12,1A71338 993MG
     Route: 042
     Dates: start: 20111128, end: 20120109

REACTIONS (4)
  - HYPOTHYROIDISM [None]
  - CUSHING'S SYNDROME [None]
  - HYPOPHYSITIS [None]
  - ADRENAL INSUFFICIENCY [None]
